FAERS Safety Report 6123577-7 (Version None)
Quarter: 2009Q1

REPORT INFORMATION
  Report Type: 
  Country: None (occurrence: None)
  Receive Date: 20090318
  Receipt Date: 20090318
  Transmission Date: 20090719
  Serious: Yes (Life-Threatening)
  Sender: FDA-Public Use
  Company Number: None

PATIENT
  Age: 51 Year
  Sex: Male

DRUGS (5)
  1. FLUCONAZOLE [Suspect]
     Dosage: 100 Q M/TH ORAL
     Route: 048
     Dates: start: 20090310
  2. FLUCONAZOLE [Suspect]
     Dosage: 100 Q M/TH ORAL
     Route: 048
     Dates: start: 20090312
  3. INVARASE [Concomitant]
  4. DEPAKOTE [Concomitant]
  5. CLONAZEPAM [Concomitant]

REACTIONS (1)
  - SUICIDAL IDEATION [None]
